FAERS Safety Report 8450049-7 (Version None)
Quarter: 2012Q2

REPORT INFORMATION
  Report Type: 
  Country: None (occurrence: None)
  Receive Date: 20120620
  Receipt Date: 20120611
  Transmission Date: 20120825
  Serious: Yes (Other)
  Sender: FDA-Public Use
  Company Number: US-JNJFOC-20120515241

PATIENT
  Sex: Female

DRUGS (8)
  1. ALL OTHER THERAPEUTIC AGENTS [Concomitant]
     Route: 065
  2. STELARA [Suspect]
     Indication: PSORIASIS
     Route: 058
     Dates: start: 20100407, end: 20120507
  3. DIMENHYDRINATE [Concomitant]
     Route: 065
  4. PREDNISONE [Concomitant]
     Route: 048
  5. IBUPROFEN (ADVIL) [Concomitant]
     Route: 065
  6. ENBREL [Suspect]
     Indication: PSORIASIS
     Route: 058
     Dates: start: 20090707
  7. ALL OTHER THERAPEUTIC AGENTS [Concomitant]
     Dosage: FOR A YEAR
     Route: 065
  8. VYTORIN [Concomitant]
     Dosage: 10/40
     Route: 048

REACTIONS (1)
  - MYCOBACTERIUM TUBERCULOSIS COMPLEX TEST POSITIVE [None]
